FAERS Safety Report 13558830 (Version 3)
Quarter: 2019Q1

REPORT INFORMATION
  Report Type: Spontaneous
  Country: US (occurrence: US)
  Receive Date: 20170518
  Receipt Date: 20190322
  Transmission Date: 20190417
  Serious: No
  Sender: FDA-Public Use
  Company Number: US-TEVA-768071ACC

PATIENT
  Sex: Female

DRUGS (3)
  1. FENTORA [Suspect]
     Active Substance: FENTANYL CITRATE
     Indication: PRODUCT USED FOR UNKNOWN INDICATION
     Dosage: 3200 MILLIGRAM DAILY;
     Route: 065
     Dates: start: 2009
  2. OXYCODONE [Concomitant]
     Active Substance: OXYCODONE
  3. DIAZEPAM. [Concomitant]
     Active Substance: DIAZEPAM

REACTIONS (3)
  - Ill-defined disorder [Recovered/Resolved]
  - Gastroenteritis viral [Recovered/Resolved]
  - Neck pain [Unknown]
